FAERS Safety Report 10574074 (Version 2)
Quarter: 2014Q4

REPORT INFORMATION
  Report Type: Report from Study
  Country: JP (occurrence: JP)
  Receive Date: 20141110
  Receipt Date: 20141110
  Transmission Date: 20150529
  Serious: Yes (Disabling)
  Sender: FDA-Public Use
  Company Number: JP-GLAXOSMITHKLINE-B0879577A

PATIENT
  Age: 22 Year
  Sex: Male
  Weight: 56 kg

DRUGS (22)
  1. METHOTREXATE [Concomitant]
     Active Substance: METHOTREXATE
     Route: 029
     Dates: start: 20130205, end: 20130205
  2. UNKNOWN DRUG [Concomitant]
     Active Substance: UNSPECIFIED INGREDIENT
     Route: 029
     Dates: start: 20130205, end: 20130205
  3. DECADRON [Concomitant]
     Active Substance: DEXAMETHASONE
     Indication: NEOPLASM MALIGNANT
     Route: 029
     Dates: start: 20121207, end: 20121209
  4. DECADRON [Concomitant]
     Active Substance: DEXAMETHASONE
     Route: 029
     Dates: start: 20130205, end: 20130205
  5. GRANISETRON [Concomitant]
     Active Substance: GRANISETRON
     Indication: PROPHYLAXIS OF NAUSEA AND VOMITING
     Dosage: UNK
     Route: 048
     Dates: start: 20121119, end: 20121123
  6. DECADRON [Concomitant]
     Active Substance: DEXAMETHASONE
     Route: 029
     Dates: start: 20130104, end: 20130104
  7. GRANISETRON [Concomitant]
     Active Substance: GRANISETRON
     Dosage: UNK
     Route: 048
     Dates: start: 20121210, end: 20121214
  8. GRANISETRON [Concomitant]
     Active Substance: GRANISETRON
     Dosage: UNK
     Route: 048
     Dates: start: 20130107, end: 20130111
  9. ITRIZOLE [Concomitant]
     Active Substance: ITRACONAZOLE
     Indication: PROPHYLAXIS
     Dosage: UNK
     Route: 048
     Dates: start: 20121119, end: 20130306
  10. NELARABINE [Suspect]
     Active Substance: NELARABINE
     Indication: PRECURSOR T-LYMPHOBLASTIC LYMPHOMA/LEUKAEMIA
     Route: 042
     Dates: start: 20121119, end: 20121123
  11. NELARABINE [Suspect]
     Active Substance: NELARABINE
     Dosage: 1500 MG/M2, QOD
     Route: 042
     Dates: start: 20121210, end: 20121214
  12. NELARABINE [Suspect]
     Active Substance: NELARABINE
     Dosage: 1500 MG/M2, QOD
     Route: 042
     Dates: start: 20130304, end: 20130306
  13. GRANISETRON [Concomitant]
     Active Substance: GRANISETRON
     Dosage: UNK
     Route: 048
     Dates: start: 20130304, end: 20130306
  14. TAKEPRON [Concomitant]
     Active Substance: LANSOPRAZOLE
     Indication: HAEMORRHAGE PROPHYLAXIS
     Dosage: UNK
     Route: 048
     Dates: start: 20121119, end: 20130306
  15. NELARABINE [Suspect]
     Active Substance: NELARABINE
     Dosage: 1500 MG/M2, QOD
     Route: 042
     Dates: start: 20130107, end: 20130111
  16. NELARABINE [Suspect]
     Active Substance: NELARABINE
     Dosage: 1500 MG/M2, QOD
     Route: 042
     Dates: start: 20130204, end: 20130208
  17. UNKNOWN DRUG [Concomitant]
     Active Substance: UNSPECIFIED INGREDIENT
     Indication: NEOPLASM MALIGNANT
     Route: 029
     Dates: start: 20121207, end: 20121209
  18. UNKNOWN DRUG [Concomitant]
     Active Substance: UNSPECIFIED INGREDIENT
     Route: 029
     Dates: start: 20130104, end: 20130104
  19. GRANISETRON [Concomitant]
     Active Substance: GRANISETRON
     Dosage: UNK
     Route: 048
     Dates: start: 20130204, end: 20130208
  20. BAKTAR [Concomitant]
     Active Substance: SULFAMETHOXAZOLE\TRIMETHOPRIM
     Indication: ANTIFUNGAL PROPHYLAXIS
     Dosage: UNK
     Route: 048
     Dates: start: 20121119, end: 20130306
  21. METHOTREXATE [Concomitant]
     Active Substance: METHOTREXATE
     Indication: NEOPLASM MALIGNANT
     Route: 029
     Dates: start: 20121207, end: 20121209
  22. METHOTREXATE [Concomitant]
     Active Substance: METHOTREXATE
     Route: 029
     Dates: start: 20130104, end: 20130104

REACTIONS (4)
  - Anaesthesia [Recovering/Resolving]
  - Nervous system disorder [Recovering/Resolving]
  - White blood cell count decreased [Recovered/Resolved]
  - Neutrophil count decreased [Recovered/Resolved]

NARRATIVE: CASE EVENT DATE: 20130104
